FAERS Safety Report 16667527 (Version 14)
Quarter: 2021Q2

REPORT INFORMATION
  Report Type: Spontaneous
  Country: TW (occurrence: TW)
  Receive Date: 20190805
  Receipt Date: 20210517
  Transmission Date: 20210716
  Serious: Yes (Other)
  Sender: FDA-Public Use
  Company Number: TW-PFIZER INC-2019327702

PATIENT
  Age: 56 Year
  Sex: Female

DRUGS (6)
  1. SUTENT [Suspect]
     Active Substance: SUNITINIB MALATE
     Dosage: 2 DF, CYCLIC (QD, 1 WEEK ON AND 1 DAY OFF)
     Route: 048
     Dates: start: 202012
  2. SUTENT [Suspect]
     Active Substance: SUNITINIB MALATE
     Dosage: 37.5MG, (12.5MG) 2#/QD AND 3#/QD ALTERNATELY
     Route: 048
  3. SUTENT [Suspect]
     Active Substance: SUNITINIB MALATE
     Indication: GASTROINTESTINAL STROMAL TUMOUR
     Dosage: 25 MG, CYCLIC (QD, 1 WEEK ON AND 1 DAY OFF)
     Route: 048
     Dates: start: 20160312
  4. SUTENT [Suspect]
     Active Substance: SUNITINIB MALATE
     Dosage: 25MG, (12.5MG) 2#/QD AND 3#/QD ALTERNATELY
     Route: 048
     Dates: start: 20210427
  5. SUTENT [Suspect]
     Active Substance: SUNITINIB MALATE
     Dosage: 3 DF, CYCLIC (QD, 1 WEEK ON AND 1 DAY OFF)
     Route: 048
     Dates: start: 202012
  6. SUTENT [Suspect]
     Active Substance: SUNITINIB MALATE
     Dosage: 2 DF, 1X/DAY (25MG/QD)
     Dates: start: 202101

REACTIONS (10)
  - Off label use [Unknown]
  - Neoplasm progression [Unknown]
  - Palmar-plantar erythrodysaesthesia syndrome [Not Recovered/Not Resolved]
  - Gastrointestinal necrosis [Recovered/Resolved]
  - Discomfort [Unknown]
  - Hair colour changes [Not Recovered/Not Resolved]
  - Glossodynia [Recovered/Resolved]
  - Diarrhoea [Not Recovered/Not Resolved]
  - Abdominal discomfort [Recovered/Resolved]
  - Taste disorder [Recovered/Resolved]

NARRATIVE: CASE EVENT DATE: 2018
